FAERS Safety Report 23868114 (Version 1)
Quarter: 2024Q2

REPORT INFORMATION
  Report Type: Report from Study
  Country: US (occurrence: US)
  Receive Date: 20240517
  Receipt Date: 20240517
  Transmission Date: 20240715
  Serious: Yes (Other)
  Sender: FDA-Public Use
  Company Number: US-BAXTER-2024BAX018331

PATIENT
  Age: 39 Year
  Sex: Female
  Weight: 76.7 kg

DRUGS (9)
  1. DOXIL [Suspect]
     Active Substance: DOXORUBICIN HYDROCHLORIDE
     Indication: Breast cancer female
     Dosage: 71.6 MG CYCLIC (71.6 MG, Q4WKS), CYCLE 1 DAY 1
     Route: 042
     Dates: start: 20230908, end: 20240419
  2. AVELUMAB [Suspect]
     Active Substance: AVELUMAB
     Indication: Breast cancer female
     Dosage: 737 MG CYCLIC (737 MG, Q2WKS), CYCLE 1 DAY 1
     Route: 042
     Dates: start: 20230908, end: 20240503
  3. BINIMETINIB [Suspect]
     Active Substance: BINIMETINIB
     Indication: Breast cancer female
     Dosage: 30 MG 2X/DAY (30 MG, BID)
     Route: 048
     Dates: start: 20230825, end: 20240404
  4. CETIRIZINE [Concomitant]
     Active Substance: CETIRIZINE HYDROCHLORIDE
     Indication: Premedication
     Dosage: 20 MG
     Route: 048
     Dates: start: 20240503
  5. GRANISETRON [Concomitant]
     Active Substance: GRANISETRON
     Indication: Premedication
     Dosage: 2 MG
     Route: 042
     Dates: start: 20240503
  6. DEXAMETHASONE [Concomitant]
     Active Substance: DEXAMETHASONE
     Indication: Premedication
     Dosage: 8 MG
     Route: 042
     Dates: start: 20240503
  7. FAMOTIDINE [Concomitant]
     Active Substance: FAMOTIDINE
     Indication: Premedication
     Dosage: 20 MG
     Route: 042
     Dates: start: 20240503
  8. APREPITANT [Concomitant]
     Active Substance: APREPITANT
     Indication: Premedication
     Dosage: 130 MG
     Route: 042
     Dates: start: 20240503
  9. ACETAMINOPHEN [Concomitant]
     Active Substance: ACETAMINOPHEN
     Indication: Premedication
     Dosage: 650 MG
     Route: 048
     Dates: start: 20240503

REACTIONS (1)
  - Infusion related reaction [Recovered/Resolved]

NARRATIVE: CASE EVENT DATE: 20240503
